FAERS Safety Report 23758644 (Version 1)
Quarter: 2024Q2

REPORT INFORMATION
  Report Type: Spontaneous
  Country: US (occurrence: None)
  Receive Date: 20240418
  Receipt Date: 20240418
  Transmission Date: 20240716
  Serious: Yes (Death, Hospitalization)
  Sender: FDA-Public Use
  Company Number: US-ROCHE-3427070

PATIENT
  Age: 57 Year
  Sex: Male
  Weight: 87.622 kg

DRUGS (7)
  1. AVASTIN [Suspect]
     Active Substance: BEVACIZUMAB
     Indication: Colon cancer metastatic
     Dosage: RECEIVED AS AN INFUSION OVER THREE DAYS EACH TREATMENT
     Route: 065
     Dates: start: 20230726, end: 20230811
  2. FLUOROURACIL\LEUCOVORIN CALCIUM\OXALIPLATIN [Concomitant]
     Active Substance: FLUOROURACIL\LEUCOVORIN CALCIUM\OXALIPLATIN
     Indication: Colon cancer metastatic
     Dosage: RECEIVED WITH AVASTIN
     Dates: start: 20230726, end: 20230811
  3. FLUOROURACIL [Concomitant]
     Active Substance: FLUOROURACIL
     Indication: Colon cancer metastatic
     Dosage: RECEIVED WITH AVASTIN
     Dates: start: 20230726, end: 20230811
  4. VITAMIN B12 [Concomitant]
     Active Substance: CYANOCOBALAMIN
     Dosage: RECEIVED ON MONDAY AND THURSDAY; 1000MCG/ML
     Dates: start: 2022, end: 202308
  5. COENZYME Q10 [Concomitant]
     Active Substance: DIETARY SUPPLEMENT\UBIDECARENONE
     Route: 048
     Dates: start: 2022, end: 202308
  6. TESTOSTERONE [Concomitant]
     Active Substance: TESTOSTERONE
     Dosage: RECEIVED ON MONDAYS
     Route: 030
     Dates: start: 2022, end: 202308
  7. GABAPENTIN [Concomitant]
     Active Substance: GABAPENTIN
     Indication: Pain

REACTIONS (7)
  - Colonic fistula [Fatal]
  - Intestinal perforation [Fatal]
  - Arterioenteric fistula [Recovered/Resolved]
  - Stoma site haemorrhage [Unknown]
  - Dizziness [Unknown]
  - Arterial haemorrhage [Recovered/Resolved]
  - Haemoglobin decreased [Unknown]

NARRATIVE: CASE EVENT DATE: 20230801
